FAERS Safety Report 4356411-6 (Version None)
Quarter: 2004Q2

REPORT INFORMATION
  Report Type: 
  Country: None (occurrence: None)
  Receive Date: 20040510
  Receipt Date: 20040510
  Transmission Date: 20050107
  Serious: Yes (Hospitalization, Other)
  Sender: FDA-Public Use
  Company Number: None

PATIENT
  Age: 65 Year
  Sex: Male
  Weight: 119.4 kg

DRUGS (8)
  1. INTEGRILIN [Suspect]
     Indication: ANTIPLATELET THERAPY
     Dosage: 2 (10.7 ML BOLUSES) INML/HR IV
     Route: 042
     Dates: start: 20040419, end: 20040420
  2. MIDAZOLAM HCL [Concomitant]
  3. FENTANYL [Concomitant]
  4. NITROGLYCERIN [Concomitant]
  5. CEFAZOLIN [Concomitant]
  6. ASPIRIN [Concomitant]
  7. PEPCID [Concomitant]
  8. CLOPIDOGREL BISULFATE [Concomitant]

REACTIONS (2)
  - BLOOD CREATINE PHOSPHOKINASE MB INCREASED [None]
  - DRUG INEFFECTIVE [None]
